FAERS Safety Report 12518035 (Version 1)
Quarter: 2016Q2

REPORT INFORMATION
  Report Type: Spontaneous
  Country: PT (occurrence: PT)
  Receive Date: 20160630
  Receipt Date: 20160630
  Transmission Date: 20160815
  Serious: Yes (Other)
  Sender: FDA-Public Use
  Company Number: PT-ASTRAZENECA-2016SE70242

PATIENT
  Age: 74 Year
  Sex: Male

DRUGS (20)
  1. IRESSA [Suspect]
     Active Substance: GEFITINIB
     Route: 048
     Dates: start: 20140812
  2. DAFLON [Concomitant]
     Active Substance: DIOSMIN\HESPERIDIN
     Dosage: BID
  3. FUROSEMIDE. [Concomitant]
     Active Substance: FUROSEMIDE
     Dosage: 20 MG/DAY
  4. TROMALYT [Concomitant]
     Active Substance: ASPIRIN
     Dosage: DINNER
  5. CONCOR [Concomitant]
     Active Substance: BISOPROLOL FUMARATE
     Dosage: 1.25 MG/DAY
  6. IBUPROFEN. [Concomitant]
     Active Substance: IBUPROFEN
     Dosage: 600, DAILY 2-3 PER DAY
  7. TEGRETOL [Concomitant]
     Active Substance: CARBAMAZEPINE
     Indication: PROPHYLAXIS
     Dosage: 200 DINNER
  8. CRESTOR [Concomitant]
     Active Substance: ROSUVASTATIN CALCIUM
     Dosage: 10 MG/DAY
  9. AMITRIPTYLINE [Concomitant]
     Active Substance: AMITRIPTYLINE
     Dosage: BEDTIME
  10. PARACETAMOL [Concomitant]
     Active Substance: ACETAMINOPHEN
  11. PANTOPRAZOLE [Concomitant]
     Active Substance: PANTOPRAZOLE SODIUM
     Dosage: 40 MG/DAY
  12. LORENIN [Concomitant]
     Active Substance: LORAZEPAM
     Dosage: 1 MG DINNER
  13. AMITRIPTYLINE [Concomitant]
     Active Substance: AMITRIPTYLINE
     Dosage: BEDTIME
  14. LISINOPRIL. [Concomitant]
     Active Substance: LISINOPRIL
     Route: 048
  15. RISPERDAL [Concomitant]
     Active Substance: RISPERIDONE
     Dosage: 1 MG DINNER
  16. NAHCO3 [Concomitant]
     Active Substance: SODIUM BICARBONATE
  17. CALCIUM CARBONATE. [Concomitant]
     Active Substance: CALCIUM CARBONATE
  18. SERENAL [Concomitant]
     Active Substance: OXAZOLAM
     Dosage: 15 MG ID
  19. RIVOTRIL [Concomitant]
     Active Substance: CLONAZEPAM
     Dosage: 0.5 MG BEDTIME
  20. PANTOPRAZOLE [Concomitant]
     Active Substance: PANTOPRAZOLE SODIUM

REACTIONS (3)
  - Fanconi syndrome acquired [Unknown]
  - Musculoskeletal pain [Unknown]
  - Arthralgia [Unknown]
